FAERS Safety Report 7135487-7 (Version None)
Quarter: 2010Q4

REPORT INFORMATION
  Report Type: 
  Country: None (occurrence: None)
  Receive Date: 20101203
  Receipt Date: 20101202
  Transmission Date: 20110411
  Serious: Yes (Death, Life-Threatening, Hospitalization)
  Sender: FDA-Public Use
  Company Number: DE-AMGEN-UK330042

PATIENT
  Sex: Female

DRUGS (18)
  1. PANITUMUMAB [Suspect]
     Indication: SQUAMOUS CELL CARCINOMA
     Dosage: 531 MG, UNK
     Route: 042
     Dates: start: 20081117, end: 20081208
  2. CISPLATIN [Suspect]
     Dosage: 75 MG/M2, UNK
     Route: 042
     Dates: start: 20081117
  3. RADIATION THERAPY [Suspect]
     Dosage: UNK UNK, UNK
     Dates: start: 20081117, end: 20090108
  4. CLINDAMYCIN [Concomitant]
     Dosage: 4 ML, QD
     Route: 061
     Dates: start: 20081208
  5. CEFTRIAXONE SODIUM [Concomitant]
     Dosage: UNK UNK, UNK
     Route: 065
     Dates: start: 20081201, end: 20090112
  6. ONDANSETRON HYDROCHLORIDE [Concomitant]
     Dosage: 8 MG, UNK
     Route: 042
     Dates: start: 20081208, end: 20081208
  7. SIMVASTATIN [Concomitant]
     Dosage: 20 MG, QD
     Route: 048
     Dates: start: 20081104
  8. METOCLOPRAMIDE HYDROCHLORIDE [Concomitant]
     Dosage: UNK UNK, TID
     Route: 048
     Dates: start: 20081120
  9. PANTOPRAZOLE [Concomitant]
     Dosage: 20 MG, QD
     Route: 048
     Dates: start: 20081015
  10. METAMIZOLE SODIUM [Concomitant]
     Dosage: UNK UNK, UNK
     Route: 048
     Dates: start: 20081130
  11. POLYETHYLENE GLYCOL [Concomitant]
     Dosage: UNK UNK, QD
     Route: 048
     Dates: start: 20081221
  12. SODIUM PICOSULFATE [Concomitant]
     Dosage: UNK UNK, PRN
     Route: 048
     Dates: start: 20081210
  13. FUROSEMIDE [Concomitant]
     Dosage: 20 MG, QD
     Route: 048
     Dates: start: 20081224
  14. BISACODYL [Concomitant]
     Dosage: 10 MG, QD
     Route: 048
     Dates: start: 20090106, end: 20090106
  15. PREDNISOLONE [Concomitant]
     Dosage: 10 MG, QD
     Route: 048
     Dates: start: 20081203
  16. ENOXAPARIN [Concomitant]
     Dosage: 40 MG, QD
     Route: 058
     Dates: start: 20081225, end: 20090112
  17. BISOPROLOL FUMARATE [Concomitant]
     Dosage: 2.5 MG, BID
     Route: 048
     Dates: start: 20081104, end: 20081221
  18. AMILORID COMP. ^RATIOPHARM^ [Concomitant]
     Dosage: 2.5 MG, QD
     Route: 048
     Dates: start: 20081104

REACTIONS (8)
  - CEREBRAL INFARCTION [None]
  - DEHYDRATION [None]
  - DERMATITIS [None]
  - DISORIENTATION [None]
  - GENERAL PHYSICAL HEALTH DETERIORATION [None]
  - MUCOSAL INFLAMMATION [None]
  - STAPHYLOCOCCAL SEPSIS [None]
  - WEIGHT DECREASED [None]
